FAERS Safety Report 23226413 (Version 1)
Quarter: 2023Q4

REPORT INFORMATION
  Report Type: Spontaneous
  Country: JP (occurrence: JP)
  Receive Date: 20231124
  Receipt Date: 20231124
  Transmission Date: 20240109
  Serious: Yes (Hospitalization, Other)
  Sender: FDA-Public Use
  Company Number: JP-BAYER-2023A167034

PATIENT
  Age: 78 Year
  Sex: Female

DRUGS (4)
  1. RIVAROXABAN [Suspect]
     Active Substance: RIVAROXABAN
     Indication: Product used for unknown indication
     Route: 048
  2. AMLODIPINE [Concomitant]
     Active Substance: AMLODIPINE BESYLATE
  3. MIROGABALIN BESYLATE [Concomitant]
     Active Substance: MIROGABALIN BESYLATE
  4. INSULIN NOS [Concomitant]
     Active Substance: INSULIN NOS
     Route: 058

REACTIONS (4)
  - Vascular pseudoaneurysm ruptured [Unknown]
  - Vascular pseudoaneurysm [Unknown]
  - Haematochezia [Unknown]
  - Haematochezia [Unknown]
